FAERS Safety Report 21159222 (Version 1)
Quarter: 2022Q3

REPORT INFORMATION
  Report Type: Spontaneous
  Country: GB (occurrence: GB)
  Receive Date: 20220802
  Receipt Date: 20220802
  Transmission Date: 20221027
  Serious: Yes (Hospitalization)
  Sender: FDA-Public Use
  Company Number: GB-JNJFOC-20220507542

PATIENT
  Age: 84 Year
  Sex: Male

DRUGS (2)
  1. ABIRATERONE [Suspect]
     Active Substance: ABIRATERONE
     Indication: Prostate cancer
     Dosage: 1000 MILLIGRAM, 1 DOSE
     Route: 048
     Dates: start: 20211122
  2. PREDNISOLONE [Concomitant]
     Active Substance: PREDNISOLONE
     Indication: Prostate cancer
     Dosage: 10 MILLIGRAM
     Route: 048
     Dates: start: 20211122

REACTIONS (4)
  - Atrial fibrillation [Unknown]
  - Infection [Recovered/Resolved]
  - Fall [Recovering/Resolving]
  - Prostatic specific antigen increased [Recovering/Resolving]

NARRATIVE: CASE EVENT DATE: 20220302
